FAERS Safety Report 22631652 (Version 1)
Quarter: 2023Q2

REPORT INFORMATION
  Report Type: Spontaneous
  Country: AT (occurrence: AT)
  Receive Date: 20230623
  Receipt Date: 20230623
  Transmission Date: 20230721
  Serious: Yes (Hospitalization, Other)
  Sender: FDA-Public Use
  Company Number: AT-009507513-2305AUT003640

PATIENT
  Age: 71 Year
  Sex: Female
  Weight: 68 kg

DRUGS (4)
  1. CARBOPLATIN [Suspect]
     Active Substance: CARBOPLATIN
     Indication: Triple negative breast cancer
     Dosage: UNK, QW
     Route: 065
     Dates: start: 20230102, end: 20230123
  2. PEMBROLIZUMAB [Suspect]
     Active Substance: PEMBROLIZUMAB
     Indication: Triple negative breast cancer
     Dosage: UNK (EVERY 3 WEEKS) (SOLUTION FOR INJECTION)
     Route: 065
     Dates: start: 20221003, end: 202212
  3. PEMBROLIZUMAB [Suspect]
     Active Substance: PEMBROLIZUMAB
     Dosage: UNK
     Route: 065
     Dates: start: 20230102, end: 20230123
  4. TAXOL [Suspect]
     Active Substance: PACLITAXEL
     Indication: Triple negative breast cancer
     Dosage: UNK UNK, QW
     Route: 065
     Dates: start: 20230102, end: 20230123

REACTIONS (10)
  - Guillain-Barre syndrome [Recovering/Resolving]
  - Tubulointerstitial nephritis [Unknown]
  - Inappropriate antidiuretic hormone secretion [Unknown]
  - Immune-mediated pancreatitis [Unknown]
  - Acute kidney injury [Unknown]
  - Immune-mediated neurological disorder [Unknown]
  - Nephrogenic anaemia [Unknown]
  - Adrenalitis [Unknown]
  - Hepatitis [Unknown]
  - Hypophysitis [Unknown]

NARRATIVE: CASE EVENT DATE: 20230101
